FAERS Safety Report 21812657 (Version 4)
Quarter: 2023Q1

REPORT INFORMATION
  Report Type: Report from Study
  Country: US (occurrence: US)
  Receive Date: 20230103
  Receipt Date: 20230128
  Transmission Date: 20230417
  Serious: Yes (Hospitalization)
  Sender: FDA-Public Use
  Company Number: US-ABBVIE-4252978

PATIENT
  Age: 35 Year
  Sex: Female

DRUGS (1)
  1. SKYRIZI [Suspect]
     Active Substance: RISANKIZUMAB-RZAA
     Indication: Crohn^s disease
     Route: 058
     Dates: start: 20221207

REACTIONS (12)
  - Haematochezia [Recovering/Resolving]
  - Sinusitis [Not Recovered/Not Resolved]
  - White blood cell count increased [Unknown]
  - Abdominal distension [Unknown]
  - Back pain [Unknown]
  - Nausea [Unknown]
  - Frequent bowel movements [Unknown]
  - Sinusitis [Recovering/Resolving]
  - Red blood cell count decreased [Recovering/Resolving]
  - Arthralgia [Recovering/Resolving]
  - Gastric infection [Unknown]
  - Decreased appetite [Unknown]

NARRATIVE: CASE EVENT DATE: 20221220
